FAERS Safety Report 4987965-4 (Version None)
Quarter: 2006Q2

REPORT INFORMATION
  Report Type: 
  Country: None (occurrence: None)
  Receive Date: 20060424
  Receipt Date: 20060419
  Transmission Date: 20061013
  Serious: Yes (Other)
  Sender: FDA-Public Use
  Company Number: 54756/535

PATIENT
  Age: 31 Year
  Sex: Female

DRUGS (3)
  1. LEVONORGESTREL [Suspect]
     Indication: POST COITAL CONTRACEPTION
     Dosage: 2 DOSES
     Route: 048
     Dates: start: 20050613, end: 20050613
  2. LORATADINE [Concomitant]
  3. SERTRALINE [Concomitant]

REACTIONS (6)
  - DEVICE FAILURE [None]
  - DRUG EXPOSURE DURING PREGNANCY [None]
  - HAEMORRHAGE [None]
  - MALE CONTRACEPTION [None]
  - PREGNANCY AFTER POST COITAL CONTRACEPTION [None]
  - PREGNANCY WITH CONTRACEPTIVE DEVICE [None]
